FAERS Safety Report 5465956-7 (Version None)
Quarter: 2007Q3

REPORT INFORMATION
  Report Type: 
  Country: None (occurrence: None)
  Receive Date: 20070924
  Receipt Date: 20070920
  Transmission Date: 20080115
  Serious: Yes (Hospitalization)
  Sender: FDA-Public Use
  Company Number: FR-BRISTOL-MYERS SQUIBB COMPANY-13865233

PATIENT
  Age: 19 Year
  Sex: Female
  Weight: 50 kg

DRUGS (9)
  1. ABILIFY [Suspect]
     Indication: PSYCHOTIC DISORDER
     Route: 048
     Dates: start: 20070313, end: 20070730
  2. ABILIFY [Suspect]
     Indication: SCHIZOPHRENIA
     Route: 048
     Dates: start: 20070313, end: 20070730
  3. VALIUM [Concomitant]
  4. ALPRAZOLAM [Concomitant]
  5. ZOLOFT [Concomitant]
     Dosage: TABLET
  6. MOVICOL [Concomitant]
  7. OMEPRAZOLE [Concomitant]
     Indication: GASTROOESOPHAGEAL REFLUX DISEASE
     Dosage: MOPRAL 20 MG
  8. MEPRONIZINE [Concomitant]
     Indication: DEPRESSION
     Dosage: 1 TAB/DAY
  9. SERETIDE [Concomitant]
     Indication: ASTHMA
     Dosage: 1 DOSAGE FORM-1 PUFFS
     Route: 055

REACTIONS (1)
  - MUSCLE HYPERTROPHY [None]
